FAERS Safety Report 23175336 (Version 1)
Quarter: 2023Q4

REPORT INFORMATION
  Report Type: Report from Study
  Country: MX (occurrence: MX)
  Receive Date: 20231113
  Receipt Date: 20231113
  Transmission Date: 20240110
  Serious: No
  Sender: FDA-Public Use
  Company Number: MX-002147023-NVSC2023MX144863

PATIENT
  Age: 6 Year
  Sex: Male
  Weight: 17 kg

DRUGS (1)
  1. OMNITROPE [Suspect]
     Active Substance: SOMATROPIN
     Indication: Growth disorder
     Dosage: 0.8 MG, QD, (10MG/ 1.5ML), ONCE A DAY
     Route: 058
     Dates: start: 20230617

REACTIONS (5)
  - Application site haemorrhage [Unknown]
  - Hypersensitivity [Unknown]
  - Needle issue [Unknown]
  - Off label use [Unknown]
  - Pain in extremity [Unknown]

NARRATIVE: CASE EVENT DATE: 20230617
